FAERS Safety Report 15682784 (Version 1)
Quarter: 2018Q4

REPORT INFORMATION
  Report Type: Spontaneous
  Country: US (occurrence: US)
  Receive Date: 20181203
  Receipt Date: 20181203
  Transmission Date: 20190205
  Serious: Yes (Hospitalization, Other)
  Sender: FDA-Public Use
  Company Number: US-BAYER-2018-219018

PATIENT
  Age: 69 Year
  Sex: Male

DRUGS (6)
  1. CLOPIDOGREL [Interacting]
     Active Substance: CLOPIDOGREL BISULFATE
  2. ATORVASTATIN [Suspect]
     Active Substance: ATORVASTATIN
  3. ACETYLSALICYLIC ACID({=100 MG) [Suspect]
     Active Substance: ASPIRIN
     Dosage: UNK
  4. AMLODIPINE [Suspect]
     Active Substance: AMLODIPINE BESYLATE
  5. OMEPRAZOLE. [Suspect]
     Active Substance: OMEPRAZOLE
  6. METOPROLOL. [Suspect]
     Active Substance: METOPROLOL

REACTIONS (6)
  - Syncope [None]
  - Product administration error [None]
  - Duodenal ulcer [None]
  - Labelled drug-drug interaction medication error [None]
  - Gastrointestinal haemorrhage [None]
  - Dyspnoea exertional [None]
